FAERS Safety Report 23762557 (Version 1)
Quarter: 2024Q2

REPORT INFORMATION
  Report Type: Spontaneous
  Country: US (occurrence: US)
  Receive Date: 20240419
  Receipt Date: 20240419
  Transmission Date: 20240715
  Serious: No
  Sender: FDA-Public Use
  Company Number: US-PFIZER INC-PV202400051950

PATIENT
  Age: 72 Year
  Sex: Female

DRUGS (1)
  1. XELJANZ [Suspect]
     Active Substance: TOFACITINIB CITRATE
     Dosage: 5 MG, 1X/DAY (PRESCRIBES ONE TABLET TWICE PER DAY)

REACTIONS (2)
  - Arthralgia [Recovering/Resolving]
  - Intentional product misuse [Unknown]
